FAERS Safety Report 8261530-8 (Version None)
Quarter: 2012Q2

REPORT INFORMATION
  Report Type: 
  Country: None (occurrence: None)
  Receive Date: 20120405
  Receipt Date: 20120329
  Transmission Date: 20120825
  Serious: Yes (Death)
  Sender: FDA-Public Use
  Company Number: US-ASTELLAS-2012US003125

PATIENT
  Sex: Female
  Weight: 44 kg

DRUGS (1)
  1. TARCEVA [Suspect]
     Indication: PRODUCT USED FOR UNKNOWN INDICATION
     Dosage: UNK
     Route: 048

REACTIONS (6)
  - HYPERTENSION [None]
  - ABDOMINAL PAIN [None]
  - PERIPHERAL SENSORY NEUROPATHY [None]
  - DEPRESSION [None]
  - PANCREATIC CARCINOMA METASTATIC [None]
  - PEPTIC ULCER [None]
